FAERS Safety Report 7987887-0 (Version None)
Quarter: 2011Q4

REPORT INFORMATION
  Report Type: 
  Country: None (occurrence: None)
  Receive Date: 20111216
  Receipt Date: 20101112
  Transmission Date: 20120403
  Serious: No
  Sender: FDA-Public Use
  Company Number: US-BRISTOL-MYERS SQUIBB COMPANY-15383151

PATIENT
  Age: 54 Year
  Sex: Female
  Weight: 80 kg

DRUGS (1)
  1. ABILIFY [Suspect]
     Indication: BIPOLAR I DISORDER
     Dosage: STARTED WITH 5MG TWICE DAILY DOSE INCREASED TO 20MG,30MG(ON 08AUG07),45MG(ON 26MAR10)

REACTIONS (1)
  - TARDIVE DYSKINESIA [None]
